FAERS Safety Report 23113054 (Version 1)
Quarter: 2023Q4

REPORT INFORMATION
  Report Type: Other
  Country: CA (occurrence: CA)
  Receive Date: 20231027
  Receipt Date: 20231027
  Transmission Date: 20240110
  Serious: Yes (Hospitalization, Other)
  Sender: FDA-Public Use
  Company Number: CA-APOTEX-2023AP015779

PATIENT
  Age: 9 Year
  Sex: Male

DRUGS (22)
  1. TACROLIMUS [Suspect]
     Active Substance: TACROLIMUS
     Indication: Donor specific antibody present
     Dosage: UNK, LOW-DOSE
     Route: 065
  2. TACROLIMUS [Suspect]
     Active Substance: TACROLIMUS
     Indication: Prophylaxis
  3. TACROLIMUS [Suspect]
     Active Substance: TACROLIMUS
     Indication: Immunosuppression
  4. PREDNISONE [Suspect]
     Active Substance: PREDNISONE
     Indication: Donor specific antibody present
     Dosage: UNK
     Route: 065
  5. PREDNISONE [Suspect]
     Active Substance: PREDNISONE
     Indication: Prophylaxis
  6. METHYLPHENIDATE [Interacting]
     Active Substance: METHYLPHENIDATE
     Indication: Abnormal behaviour
     Dosage: UNK
     Route: 065
  7. METHYLPHENIDATE [Interacting]
     Active Substance: METHYLPHENIDATE
     Indication: Anxiety
  8. ARIPIPRAZOLE [Interacting]
     Active Substance: ARIPIPRAZOLE
     Indication: Abnormal behaviour
     Dosage: UNK
     Route: 065
  9. ARIPIPRAZOLE [Interacting]
     Active Substance: ARIPIPRAZOLE
     Indication: Anxiety
  10. SERTRALINE [Interacting]
     Active Substance: SERTRALINE HYDROCHLORIDE
     Indication: Abnormal behaviour
     Dosage: UNK
     Route: 065
  11. SERTRALINE [Interacting]
     Active Substance: SERTRALINE HYDROCHLORIDE
     Indication: Anxiety
  12. MOXIFLOXACIN [Suspect]
     Active Substance: MOXIFLOXACIN
     Indication: Anti-infective therapy
     Dosage: UNK
     Route: 048
  13. LINEZOLID [Interacting]
     Active Substance: LINEZOLID
     Indication: Anti-infective therapy
     Dosage: UNK
     Route: 048
  14. SULFAMETHOXAZOLE\TRIMETHOPRIM [Concomitant]
     Active Substance: SULFAMETHOXAZOLE\TRIMETHOPRIM
     Indication: Product used for unknown indication
     Dosage: UNK
     Route: 048
  15. CLARITHROMYCIN [Concomitant]
     Active Substance: CLARITHROMYCIN
     Indication: Product used for unknown indication
     Dosage: UNK
     Route: 065
  16. DOXYCYCLINE [Concomitant]
     Active Substance: DOXYCYCLINE
     Indication: Product used for unknown indication
     Dosage: UNK
     Route: 065
  17. FLUCONAZOLE [Concomitant]
     Active Substance: FLUCONAZOLE
     Indication: Antifungal prophylaxis
     Dosage: UNK
     Route: 048
  18. CEFTAZIDIME [Concomitant]
     Active Substance: CEFTAZIDIME
     Indication: Anti-infective therapy
     Dosage: UNK
     Route: 033
  19. AMIKACIN [Concomitant]
     Active Substance: AMIKACIN
     Indication: Anti-infective therapy
     Dosage: UNK
     Route: 042
  20. IMIPENEM [Concomitant]
     Active Substance: IMIPENEM
     Indication: Anti-infective therapy
     Dosage: UNK
     Route: 042
  21. VANCOMYCIN [Concomitant]
     Active Substance: VANCOMYCIN
     Indication: Bacterial infection
     Dosage: UNK
     Route: 033
  22. CIPROFLOXACIN [Concomitant]
     Active Substance: CIPROFLOXACIN
     Indication: Anti-infective therapy
     Dosage: UNK
     Route: 048

REACTIONS (4)
  - Drug interaction [Unknown]
  - Mycobacterial peritonitis [Recovered/Resolved]
  - Electrocardiogram QT prolonged [Recovered/Resolved]
  - Mycobacterium fortuitum infection [Recovered/Resolved]
